FAERS Safety Report 20391456 (Version 1)
Quarter: 2022Q1

REPORT INFORMATION
  Report Type: Spontaneous
  Country: IR (occurrence: IR)
  Receive Date: 20220128
  Receipt Date: 20220128
  Transmission Date: 20220423
  Serious: Yes (Other)
  Sender: FDA-Public Use
  Company Number: IR-MACLEODS PHARMACEUTICALS US LTD-MAC2021033978

PATIENT

DRUGS (1)
  1. TENOFOVIR DISOPROXIL [Suspect]
     Active Substance: TENOFOVIR DISOPROXIL
     Indication: Chronic hepatitis B
     Dosage: 300 MILLIGRAM, QD
     Route: 065
     Dates: start: 2005, end: 2018

REACTIONS (4)
  - Osteoporosis [Recovering/Resolving]
  - Hypophosphataemic osteomalacia [Recovering/Resolving]
  - Fanconi syndrome acquired [Recovering/Resolving]
  - Fracture [Recovering/Resolving]

NARRATIVE: CASE EVENT DATE: 20160101
